FAERS Safety Report 13694135 (Version 2)
Quarter: 2017Q3

REPORT INFORMATION
  Report Type: Spontaneous
  Country: CA (occurrence: CA)
  Receive Date: 20170627
  Receipt Date: 20170804
  Transmission Date: 20171127
  Serious: Yes (Hospitalization)
  Sender: FDA-Public Use
  Company Number: CA-SA-2017SA110402

PATIENT
  Age: 37 Year
  Sex: Female
  Weight: 56.69 kg

DRUGS (1)
  1. SODIUM FERRIC GLUCONATE COMPLEX. [Suspect]
     Active Substance: SODIUM FERRIC GLUCONATE COMPLEX
     Indication: BLOOD IRON
     Route: 042
     Dates: start: 20160419, end: 20160419

REACTIONS (1)
  - Serum ferritin decreased [Unknown]

NARRATIVE: CASE EVENT DATE: 20160419
